APPROVED DRUG PRODUCT: OFLOXACIN
Active Ingredient: OFLOXACIN
Strength: 0.3%
Dosage Form/Route: SOLUTION/DROPS;OPHTHALMIC
Application: A217904 | Product #001 | TE Code: AT
Applicant: CAPLIN STERILES LTD
Approved: Apr 12, 2024 | RLD: No | RS: No | Type: RX